FAERS Safety Report 19871698 (Version 11)
Quarter: 2022Q4

REPORT INFORMATION
  Report Type: Spontaneous
  Country: CA (occurrence: CA)
  Receive Date: 20210923
  Receipt Date: 20221210
  Transmission Date: 20230113
  Serious: Yes (Other)
  Sender: FDA-Public Use
  Company Number: CA-CELLTRION INC.-2021CA003908

PATIENT

DRUGS (19)
  1. INFLECTRA [Suspect]
     Active Substance: INFLIXIMAB-DYYB
     Indication: Colitis ulcerative
     Dosage: 1 DF, 0 WEEK, Q 0 DOSAGE NOT AVAILABLE - STARTED IN HOSPITAL
     Route: 042
     Dates: start: 20210206, end: 20210206
  2. INFLECTRA [Suspect]
     Active Substance: INFLIXIMAB-DYYB
     Dosage: 5 MG/KG,  2 WEEK (386 MG)
     Route: 042
     Dates: start: 20210302, end: 20210302
  3. INFLECTRA [Suspect]
     Active Substance: INFLIXIMAB-DYYB
     Dosage: 386 MG,  6 WEEK
     Route: 042
     Dates: start: 20210329, end: 20210329
  4. INFLECTRA [Suspect]
     Active Substance: INFLIXIMAB-DYYB
     Dosage: 386 MG, EVERY 8 WEEKS
     Route: 042
     Dates: start: 20210525
  5. INFLECTRA [Suspect]
     Active Substance: INFLIXIMAB-DYYB
     Dosage: 5 MG/KG, EVERY 8 WEEKS
     Route: 042
     Dates: start: 20210525, end: 20211109
  6. INFLECTRA [Suspect]
     Active Substance: INFLIXIMAB-DYYB
     Dosage: 386 MG, EVERY 8 WEEKS
     Route: 042
     Dates: start: 20210615
  7. INFLECTRA [Suspect]
     Active Substance: INFLIXIMAB-DYYB
     Dosage: 386 MG, EVERY 8 WEEKS
     Route: 042
     Dates: start: 20210727
  8. INFLECTRA [Suspect]
     Active Substance: INFLIXIMAB-DYYB
     Dosage: 386 MG, EVERY 8 WEEKS
     Route: 042
     Dates: start: 20210913
  9. INFLECTRA [Suspect]
     Active Substance: INFLIXIMAB-DYYB
     Dosage: 320 MG, EVERY 8 WEEKS
     Route: 042
     Dates: start: 20211109
  10. INFLECTRA [Suspect]
     Active Substance: INFLIXIMAB-DYYB
     Dosage: 5 MG/KG, EVERY 6 WEEKS
     Route: 042
     Dates: start: 20211228
  11. INFLECTRA [Suspect]
     Active Substance: INFLIXIMAB-DYYB
     Dosage: 5 MG/KG, EVERY 6 WEEKS
     Route: 042
     Dates: start: 20210324
  12. INFLECTRA [Suspect]
     Active Substance: INFLIXIMAB-DYYB
     Dosage: 5 MG/KG EVERY 6 WEEKS
     Route: 042
     Dates: start: 20220505
  13. INFLECTRA [Suspect]
     Active Substance: INFLIXIMAB-DYYB
     Dosage: 5 MG/KG EVERY 6 WEEKS
     Route: 042
     Dates: start: 20220615
  14. INFLECTRA [Suspect]
     Active Substance: INFLIXIMAB-DYYB
     Dosage: 5 MG/KG EVERY 6 WEEKS
     Route: 042
     Dates: start: 20220727
  15. INFLECTRA [Suspect]
     Active Substance: INFLIXIMAB-DYYB
     Dosage: 5 MG/KG, EVERY 6 WEEKS
     Route: 042
     Dates: start: 20220909
  16. INFLECTRA [Suspect]
     Active Substance: INFLIXIMAB-DYYB
     Dosage: 5 MG/KG, EVERY 6 WEEKS
     Route: 042
     Dates: start: 20221021
  17. INFLECTRA [Suspect]
     Active Substance: INFLIXIMAB-DYYB
     Dosage: 5 MG/KG, EVERY 6 WEEKS
     Route: 042
     Dates: start: 20221130
  18. PREDNISONE [Concomitant]
     Active Substance: PREDNISONE
     Dosage: 40 MG, TAPERING DOSE - STARTED AT 40MG
     Route: 065
  19. PREDNISONE [Concomitant]
     Active Substance: PREDNISONE
     Dosage: 35 MG, TAPERING DOSE - STARTED AT 40MG, CURRENTLY AT 35MG
     Route: 065

REACTIONS (8)
  - Condition aggravated [Recovered/Resolved]
  - Off label use [Unknown]
  - Off label use [Unknown]
  - Intentional product use issue [Unknown]
  - Inappropriate schedule of product administration [Unknown]
  - Incorrect dose administered [Unknown]
  - Weight fluctuation [Not Recovered/Not Resolved]
  - Condition aggravated [Recovered/Resolved]

NARRATIVE: CASE EVENT DATE: 20210101
